FAERS Safety Report 25221659 (Version 1)
Quarter: 2025Q2

REPORT INFORMATION
  Report Type: Spontaneous
  Country: US (occurrence: None)
  Receive Date: 20250421
  Receipt Date: 20250421
  Transmission Date: 20250717
  Serious: Yes (Other)
  Sender: FDA-CTU
  Company Number: None

PATIENT
  Age: 92 Year
  Sex: Female
  Weight: 54.4 kg

DRUGS (2)
  1. VERSED [Suspect]
     Active Substance: MIDAZOLAM HYDROCHLORIDE
  2. FENTANYL [Suspect]
     Active Substance: FENTANYL

REACTIONS (2)
  - Unresponsive to stimuli [None]
  - Apnoea [None]

NARRATIVE: CASE EVENT DATE: 20241010
